FAERS Safety Report 4741943-9 (Version None)
Quarter: 2005Q3

REPORT INFORMATION
  Report Type: 
  Country: None (occurrence: None)
  Receive Date: 20050801
  Receipt Date: 20050616
  Transmission Date: 20060218
  Serious: No
  Sender: FDA-Public Use
  Company Number: 2005PV000050

PATIENT
  Age: 63 Year
  Sex: Female
  Weight: 124.2856 kg

DRUGS (8)
  1. BYETTA [Suspect]
     Indication: DIABETES MELLITUS NON-INSULIN-DEPENDENT
     Dosage: 5 UG;BID;SC
     Route: 058
     Dates: start: 20050616
  2. GLUCOPHAGE [Concomitant]
  3. LANTUS [Concomitant]
  4. DIOVAN [Concomitant]
  5. ZETIA [Concomitant]
  6. SYNTHROID [Concomitant]
  7. PAXIL [Concomitant]
  8. XALATAN [Concomitant]

REACTIONS (2)
  - BLOOD GLUCOSE INCREASED [None]
  - INJECTION SITE PAIN [None]
